FAERS Safety Report 24386339 (Version 1)
Quarter: 2024Q4

REPORT INFORMATION
  Report Type: Report from Study
  Country: US (occurrence: US)
  Receive Date: 20241001
  Receipt Date: 20241001
  Transmission Date: 20250115
  Serious: Yes (Other)
  Sender: ABBVIE
  Company Number: US-ABBVIE-5937062

PATIENT
  Sex: Female

DRUGS (1)
  1. SKYRIZI [Suspect]
     Active Substance: RISANKIZUMAB-RZAA
     Indication: Crohn^s disease
     Route: 042
     Dates: start: 20230802, end: 20240412

REACTIONS (6)
  - Mastectomy [Recovered/Resolved]
  - Crohn^s disease [Unknown]
  - Wound dehiscence [Unknown]
  - Breast reconstruction [Recovered/Resolved]
  - Mastectomy [Recovering/Resolving]
  - Breast reconstruction [Recovering/Resolving]

NARRATIVE: CASE EVENT DATE: 20240101
